FAERS Safety Report 19145924 (Version 1)
Quarter: 2021Q2

REPORT INFORMATION
  Report Type: Spontaneous
  Country: GB (occurrence: GB)
  Receive Date: 20210416
  Receipt Date: 20210416
  Transmission Date: 20210717
  Serious: Yes (Other)
  Sender: FDA-Public Use
  Company Number: GB-TEVA-2021-GB-1901253

PATIENT
  Age: 92 Year
  Sex: Female
  Weight: 53 kg

DRUGS (10)
  1. BISOPROLOL [Concomitant]
     Active Substance: BISOPROLOL
     Dosage: 1 DOSAGE FORMS DAILY; EVERY MORNING
     Dates: start: 20200821
  2. ATORVASTATIN [Suspect]
     Active Substance: ATORVASTATIN
     Dosage: 20 MILLIGRAM DAILY; AT NIGHT
     Dates: start: 20201112, end: 20210211
  3. LERCANIDIPINE HYDROCHLORIDE [Concomitant]
     Active Substance: LERCANIDIPINE HYDROCHLORIDE
     Dosage: 1 DOSAGE FORMS DAILY; EVERY MORNING
     Dates: start: 20200821
  4. COLECALCIFEROL [Concomitant]
     Active Substance: CHOLECALCIFEROL
     Dosage: 1 DOSAGE FORMS DAILY; EVERY MORNING
     Dates: start: 20200821
  5. EDOXABAN [Concomitant]
     Active Substance: EDOXABAN TOSYLATE
     Dosage: 1 DOSAGE FORMS DAILY; EVERY MORNING
     Dates: start: 20200821
  6. MACROGOL [Concomitant]
     Active Substance: POLYETHYLENE GLYCOLS
     Dosage: ONE TO BE TAKEN AS DIRECTED BY YOUR DOCTOR ORAN.
     Dates: start: 20210315
  7. DOUBLEBASE [Concomitant]
     Active Substance: ISOPROPYL MYRISTATE\PARAFFIN
     Dosage: USE AS NEEDED
     Dates: start: 20200821
  8. FENOFIBRATE. [Concomitant]
     Active Substance: FENOFIBRATE
     Dosage: 1 DOSAGE FORMS DAILY; TAKE ONE TABLET ONCE A DAY INSTEAD OF ATORVASTATIN
     Dates: start: 20210211
  9. ATORVASTATIN [Suspect]
     Active Substance: ATORVASTATIN
     Dosage: 20 MG
     Dates: start: 20210406
  10. LANSOPRAZOLE. [Concomitant]
     Active Substance: LANSOPRAZOLE
     Dosage: 1 DOSAGE FORMS DAILY; EVERY MORNING
     Dates: start: 20201112

REACTIONS (1)
  - Hepatic function abnormal [Recovered/Resolved]

NARRATIVE: CASE EVENT DATE: 20210406
